FAERS Safety Report 9236791 (Version 2)
Quarter: 2013Q2

REPORT INFORMATION
  Report Type: Spontaneous
  Country: US (occurrence: US)
  Receive Date: 20130417
  Receipt Date: 20130506
  Transmission Date: 20140414
  Serious: Yes (Death)
  Sender: FDA-Public Use
  Company Number: US-PFIZER INC-2013115871

PATIENT
  Age: 32 Year
  Sex: Male

DRUGS (1)
  1. XYNTHA [Suspect]
     Indication: FACTOR VIII DEFICIENCY
     Dosage: 28000 IU, MONTHLY
     Dates: start: 20091217

REACTIONS (2)
  - Road traffic accident [Fatal]
  - Drowning [Fatal]
